FAERS Safety Report 15677645 (Version 11)
Quarter: 2019Q4

REPORT INFORMATION
  Report Type: Report from Study
  Country: GB (occurrence: GB)
  Receive Date: 20181130
  Receipt Date: 20191227
  Transmission Date: 20200122
  Serious: Yes (Hospitalization, Other)
  Sender: FDA-Public Use
  Company Number: PHHY2018GB139184

PATIENT
  Age: 71 Year
  Sex: Female

DRUGS (1)
  1. SANDOSTATIN LAR DEPOT [Suspect]
     Active Substance: OCTREOTIDE ACETATE
     Indication: NEUROENDOCRINE TUMOUR
     Dosage: 30 MG, QMO (EVERY 4 WEEKS)
     Route: 030
     Dates: start: 20180926

REACTIONS (24)
  - Lower respiratory tract infection [Unknown]
  - Lacrimal disorder [Unknown]
  - Diarrhoea [Unknown]
  - Headache [Recovering/Resolving]
  - Musculoskeletal pain [Unknown]
  - Pigmentation disorder [Unknown]
  - Steatorrhoea [Unknown]
  - Dyspnoea [Unknown]
  - Sinus disorder [Unknown]
  - Abdominal discomfort [Unknown]
  - Cough [Unknown]
  - Nasopharyngitis [Unknown]
  - Neck pain [Unknown]
  - Dyspepsia [Unknown]
  - Chest discomfort [Unknown]
  - Fall [Unknown]
  - Food poisoning [Unknown]
  - Asthenia [Unknown]
  - Alanine aminotransferase increased [Unknown]
  - Productive cough [Unknown]
  - Flatulence [Unknown]
  - Malaise [Unknown]
  - Muscle spasms [Unknown]
  - Nausea [Unknown]

NARRATIVE: CASE EVENT DATE: 20181114
